FAERS Safety Report 7214573-7 (Version None)
Quarter: 2011Q1

REPORT INFORMATION
  Report Type: 
  Country: None (occurrence: None)
  Receive Date: 20110107
  Receipt Date: 20110104
  Transmission Date: 20110831
  Serious: Yes (Death)
  Sender: FDA-Public Use
  Company Number: DE-GENZYME-CAMP-1001186

PATIENT

DRUGS (18)
  1. CAMPATH [Suspect]
     Dosage: 10 MG, ONCE, DAY 1, SUBSEQUENT CYCLES
     Route: 065
  2. TRIMETHOPRIM + SULFAMETHOXAZOLE [Concomitant]
     Indication: INFECTION PROPHYLAXIS
     Dosage: 960 MG, 3X/W
     Route: 065
  3. CYCLOPHOSPHAMIDE [Suspect]
     Indication: PERIPHERAL T-CELL LYMPHOMA UNSPECIFIED
     Dosage: 600 MG/M2, ONCE, DAY 3, CYCLE 1
     Route: 065
  4. DOXORUBICIN HCL [Suspect]
     Dosage: 50 MG/M2, ONCE, DAY 3, SUBSEQUENT CYCLES
     Route: 065
  5. SEROTONIN ANTAGONISTS [Concomitant]
     Indication: PREMEDICATION
     Dosage: UNK, DAY 2 AND 3, CYCLE 1 AND 2
  6. FAMCICLOVIR [Concomitant]
     Indication: INFECTION PROPHYLAXIS
     Dosage: 250 MG, BID
     Route: 065
  7. CAMPATH [Suspect]
     Dosage: 30 MG, QD, DAY 3 AND 4, CYCLE 1
     Route: 065
  8. CAMPATH [Suspect]
     Dosage: 30 MG, QD, DAY 2 AND 3, SUBSEQUENT CYCLES
     Route: 065
  9. CYCLOPHOSPHAMIDE [Suspect]
     Dosage: 600 MG/M2, ONCE, DAY 2, SUBSEQUENT CYCLES
     Route: 065
  10. DOXORUBICIN HCL [Suspect]
     Indication: PERIPHERAL T-CELL LYMPHOMA UNSPECIFIED
     Dosage: 50 MG/M2, ONCE, DAY 4, CYCLE 1
     Route: 065
  11. ACETAMINOPHEN [Concomitant]
     Indication: PREMEDICATION
     Dosage: 1 G, ONCE, DAY 1, CYCLE 1 AND 2
     Route: 048
  12. CAMPATH [Suspect]
     Dosage: 10 MG, QD, DAY 2, CYCLE 1
     Route: 065
  13. CAMPATH [Suspect]
     Indication: PERIPHERAL T-CELL LYMPHOMA UNSPECIFIED
     Dosage: 3 MG, ONCE, DAY 1, CYCLE 1
     Route: 065
  14. CLEMASTINE FUMARATE [Concomitant]
     Indication: PREMEDICATION
     Dosage: 2 MG, ONCE, DAY 1, CYCLE 1 AND 2
     Route: 042
  15. PREDNISONE [Concomitant]
     Indication: PREMEDICATION
     Dosage: 100 MG, ONCE, DAY 1
     Route: 042
  16. FLUDARABINE PHOSPHATE [Suspect]
     Dosage: 25 MG/M2, QD, DAY 1, 2, AND 3, SUBSEQUENT CYCLES
     Route: 065
  17. PREDNISONE [Concomitant]
     Dosage: 50 MG, QD, DAY 2 AND 3
     Route: 042
  18. FLUDARABINE PHOSPHATE [Suspect]
     Indication: PERIPHERAL T-CELL LYMPHOMA UNSPECIFIED
     Dosage: 25 MG/M2, QD, DAY 2, 3 AND 4, CYCLE 1
     Route: 065

REACTIONS (1)
  - EPSTEIN-BARR VIRUS ASSOCIATED LYMPHOPROLIFERATIVE DISORDER [None]
